FAERS Safety Report 5236523-5 (Version None)
Quarter: 2007Q1

REPORT INFORMATION
  Report Type: 
  Country: None (occurrence: None)
  Receive Date: 20070208
  Receipt Date: 20070126
  Transmission Date: 20070707
  Serious: Yes (Other)
  Sender: FDA-Public Use
  Company Number: 15597

PATIENT
  Age: 52 Year
  Sex: Male

DRUGS (9)
  1. METHOTREXATE [Suspect]
  2. VINCRISTINE [Suspect]
  3. DAUNORUBICIN HCL [Suspect]
  4. CYTARABINE [Suspect]
  5. DEXAMETHASONE [Suspect]
  6. CYCLOPHOSPHAMIDE [Suspect]
  7. ASPARAGINASE [Suspect]
  8. MERCAPTOPURINE [Suspect]
  9. LAMIVUDINE [Suspect]

REACTIONS (4)
  - DRUG TOXICITY [None]
  - HEPATOTOXICITY [None]
  - JAUNDICE CHOLESTATIC [None]
  - LIVER DISORDER [None]
